FAERS Safety Report 4502401-X (Version None)
Quarter: 2004Q4

REPORT INFORMATION
  Report Type: 
  Country: None (occurrence: None)
  Receive Date: 20041110
  Receipt Date: 20041025
  Transmission Date: 20050328
  Serious: Yes (Hospitalization)
  Sender: FDA-Public Use
  Company Number: S04-FRA-07357-01

PATIENT
  Age: 52 Year
  Sex: Male

DRUGS (4)
  1. CITALOPRAM HYDROBROMIDE [Suspect]
     Dosage: 20 MG BID PO
     Route: 048
     Dates: end: 20040924
  2. LORMETAZEPAM [Suspect]
     Dosage: 2 MG BID PO
     Route: 048
     Dates: end: 20040924
  3. RISPERDAL [Suspect]
     Dosage: 4 MG BID PO
     Route: 048
     Dates: end: 20040924
  4. ARTANE [Concomitant]

REACTIONS (4)
  - CONFUSIONAL STATE [None]
  - DISORIENTATION [None]
  - INTENTIONAL OVERDOSE [None]
  - SOMNOLENCE [None]
